FAERS Safety Report 4779959-9 (Version None)
Quarter: 2005Q3

REPORT INFORMATION
  Report Type: 
  Country: None (occurrence: None)
  Receive Date: 20050927
  Receipt Date: 20050810
  Transmission Date: 20060218
  Serious: Yes (Hospitalization)
  Sender: FDA-Public Use
  Company Number: JP-GLAXOSMITHKLINE-B0390607A

PATIENT
  Sex: Female
  Weight: 64 kg

DRUGS (14)
  1. PAXIL [Suspect]
     Indication: DEPRESSION
     Dosage: 10MG PER DAY
     Route: 048
     Dates: start: 20050801, end: 20050807
  2. SELOKEN [Suspect]
     Indication: ATRIAL FIBRILLATION
     Dosage: 20MG TWICE PER DAY
     Route: 048
     Dates: start: 20050801, end: 20050803
  3. WARFARIN SODIUM [Suspect]
     Route: 048
     Dates: start: 20050628, end: 20050805
  4. SUNRYTHM [Suspect]
     Indication: TACHYARRHYTHMIA
     Dosage: 50MG THREE TIMES PER DAY
     Route: 048
     Dates: start: 20050706, end: 20050807
  5. VERAPAMIL [Concomitant]
     Indication: ATRIAL FIBRILLATION
     Dosage: 120MG PER DAY
     Route: 048
     Dates: start: 20050803, end: 20050807
  6. MICARDIS [Concomitant]
     Indication: HYPERTENSION
     Dosage: 40MG PER DAY
     Route: 048
     Dates: start: 20050406, end: 20050802
  7. TAKEPRON [Concomitant]
     Indication: GASTRIC ULCER
     Dosage: 30MG PER DAY
     Route: 048
     Dates: start: 20050629
  8. LASIX [Concomitant]
     Dosage: 40MG PER DAY
     Route: 048
     Dates: start: 20050412
  9. ALDACTONE [Concomitant]
     Dosage: 25MG PER DAY
     Route: 048
     Dates: start: 20050629
  10. SELBEX [Concomitant]
     Indication: GASTRIC ULCER
     Dosage: 150MG PER DAY
     Route: 048
     Dates: start: 20050813
  11. CONCLYTE-MG [Concomitant]
     Dosage: 20ML PER DAY
     Route: 042
     Dates: start: 20050801, end: 20050803
  12. PRIMPERAN INJ [Concomitant]
     Dosage: 10MG PER DAY
     Route: 042
     Dates: start: 20050801, end: 20050803
  13. BUSCOPAN [Concomitant]
     Dosage: 20MG PER DAY
     Route: 042
     Dates: start: 20050801, end: 20050803
  14. OMEPRAZOLE [Concomitant]
     Dosage: 40MG PER DAY
     Route: 042
     Dates: start: 20050805, end: 20050814

REACTIONS (8)
  - ACIDOSIS [None]
  - CHEST DISCOMFORT [None]
  - DEPRESSED LEVEL OF CONSCIOUSNESS [None]
  - DIZZINESS [None]
  - HEPATIC FAILURE [None]
  - MALAISE [None]
  - PALLOR [None]
  - SHOCK [None]
